FAERS Safety Report 4766146-3 (Version None)
Quarter: 2005Q3

REPORT INFORMATION
  Report Type: 
  Country: None (occurrence: None)
  Receive Date: 20050909
  Receipt Date: 20050826
  Transmission Date: 20060218
  Serious: Yes (Hospitalization)
  Sender: FDA-Public Use
  Company Number: 26183

PATIENT
  Age: 79 Year
  Sex: Female

DRUGS (1)
  1. FLECAINIDE ACETATE [Suspect]
     Dosage: 150 MG, ORAL
     Route: 048
     Dates: end: 20041228

REACTIONS (6)
  - DIARRHOEA [None]
  - ELECTROCARDIOGRAM QT PROLONGED [None]
  - HYPOKALAEMIA [None]
  - MALAISE [None]
  - TONIC CLONIC MOVEMENTS [None]
  - TORSADE DE POINTES [None]
